FAERS Safety Report 9507994 (Version 2)
Quarter: 2014Q1

REPORT INFORMATION
  Report Type: Spontaneous
  Country: US (occurrence: None)
  Receive Date: 20130305
  Receipt Date: 20140306
  Transmission Date: 20141002
  Serious: Yes (Life-Threatening, Other)
  Sender: FDA-Public Use
  Company Number: 163-21880-12051926

PATIENT
  Age: 81 Year
  Sex: Male
  Weight: 76.3 kg

DRUGS (2)
  1. REVLIMID [Suspect]
     Indication: MYELODYSPLASTIC SYNDROME
     Dosage: 10 MG, DAILY X 21 DAYS/OFF 7 DAYS, PO
     Route: 048
     Dates: start: 20120118
  2. XARELTO (RIVAROXABAN) [Concomitant]

REACTIONS (2)
  - Chondrocalcinosis pyrophosphate [None]
  - Deep vein thrombosis [None]
